FAERS Safety Report 10305140 (Version 1)
Quarter: 2014Q3

REPORT INFORMATION
  Report Type: Spontaneous
  Country: US (occurrence: None)
  Receive Date: 20140711
  Receipt Date: 20140711
  Transmission Date: 20150326
  Serious: Yes (Life-Threatening, Other)
  Sender: FDA-Public Use
  Company Number: None

PATIENT
  Age: 58 Year
  Sex: Female
  Weight: 97.98 kg

DRUGS (6)
  1. SINGULAR (ALLEGRIA) [Concomitant]
  2. CALIUM [Concomitant]
  3. RIVAROXABAN [Suspect]
     Active Substance: RIVAROXABAN
     Indication: THROMBOSIS PROPHYLAXIS
     Dosage: 1 TABLET
     Route: 048
     Dates: start: 20140324
  4. ALEGRA [Concomitant]
  5. RIVAROXABAN [Suspect]
     Active Substance: RIVAROXABAN
     Indication: PULMONARY THROMBOSIS
     Dosage: 1 TABLET
     Route: 048
     Dates: start: 20140324
  6. MULTI VITAMIN [Concomitant]
     Active Substance: VITAMINS

REACTIONS (9)
  - Chest pain [None]
  - Headache [None]
  - Thrombosis [None]
  - Fatigue [None]
  - Ulcer [None]
  - Somnolence [None]
  - Abdominal pain upper [None]
  - International normalised ratio decreased [None]
  - Product substitution issue [None]

NARRATIVE: CASE EVENT DATE: 20140324
